FAERS Safety Report 11465434 (Version 1)
Quarter: 2015Q3

REPORT INFORMATION
  Report Type: Report from Study
  Country: CA (occurrence: CA)
  Receive Date: 20150907
  Receipt Date: 20150907
  Transmission Date: 20151125
  Serious: Yes (Death, Hospitalization, Other)
  Sender: FDA-Public Use
  Company Number: CA-ASTRAZENECA-2013SE77186

PATIENT
  Age: 63 Year
  Sex: Male

DRUGS (7)
  1. ASA [Concomitant]
     Active Substance: ASPIRIN
  2. ZOLADEX LA [Suspect]
     Active Substance: GOSERELIN ACETATE
     Indication: PROSTATE CANCER
     Route: 058
     Dates: start: 20110420
  3. APO-ATENOLOL [Concomitant]
  4. CASODEX [Suspect]
     Active Substance: BICALUTAMIDE
     Route: 048
  5. RAMIPRIL. [Concomitant]
     Active Substance: RAMIPRIL
  6. FLOVENT [Concomitant]
     Active Substance: FLUTICASONE PROPIONATE
  7. APO-ATORVASTATIN [Concomitant]
     Active Substance: ATORVASTATIN

REACTIONS (7)
  - Haemorrhage [Unknown]
  - Injection site bruising [Unknown]
  - Prostatic specific antigen abnormal [Unknown]
  - Fall [Unknown]
  - Metastases to nervous system [Not Recovered/Not Resolved]
  - Malignant neoplasm progression [Not Recovered/Not Resolved]
  - Death [Fatal]

NARRATIVE: CASE EVENT DATE: 20150617
